FAERS Safety Report 7048348-9 (Version None)
Quarter: 2010Q4

REPORT INFORMATION
  Report Type: 
  Country: None (occurrence: None)
  Receive Date: 20101015
  Receipt Date: 20101008
  Transmission Date: 20110411
  Serious: Yes (Hospitalization)
  Sender: FDA-Public Use
  Company Number: US-ROCHE-732354

PATIENT
  Age: 69 Year
  Sex: Female

DRUGS (3)
  1. AVASTIN [Suspect]
     Indication: OVARIAN CANCER
     Dosage: 5 DOSES, LAST DOSE:01 OCTOBER 2010.
     Route: 065
  2. CARBOPLATIN [Suspect]
     Indication: OVARIAN CANCER
     Route: 065
  3. TAXOL [Concomitant]

REACTIONS (1)
  - SPEECH DISORDER [None]
